FAERS Safety Report 9454266 (Version 2)
Quarter: 2013Q3

REPORT INFORMATION
  Report Type: Spontaneous
  Country: US (occurrence: None)
  Receive Date: 20130807
  Receipt Date: 20130919
  Transmission Date: 20140515
  Serious: Yes (Other)
  Sender: FDA-Public Use
  Company Number: A1035684A

PATIENT
  Sex: Female

DRUGS (1)
  1. CALCIUM CARBONATE (FORMULATION UNKNOWN) (CALCIUM CARBONATE) [Suspect]
     Indication: ABDOMINAL DISCOMFORT
     Route: 048

REACTIONS (5)
  - Nephrolithiasis [None]
  - Renal pain [None]
  - Abdominal discomfort [None]
  - Gastric disorder [None]
  - Exposure during pregnancy [None]
